FAERS Safety Report 7564712-3 (Version None)
Quarter: 2011Q2

REPORT INFORMATION
  Report Type: 
  Country: None (occurrence: None)
  Receive Date: 20110622
  Receipt Date: 20101012
  Transmission Date: 20111010
  Serious: Yes (Death)
  Sender: FDA-Public Use
  Company Number: US-MYLANLABS-2010S1017315

PATIENT
  Age: 58 Year
  Sex: Male
  Weight: 77.3 kg

DRUGS (15)
  1. TYLENOL-500 [Concomitant]
     Route: 048
  2. COMBIVENT [Concomitant]
  3. CIPROFLOXACIN HCL [Concomitant]
     Route: 042
  4. COLACE [Concomitant]
  5. HYDROCHLOROTHIAZIDE [Concomitant]
     Route: 048
  6. CLOZAPINE [Suspect]
     Indication: SCHIZOAFFECTIVE DISORDER
     Route: 048
     Dates: end: 20100909
  7. PEPCID [Concomitant]
  8. ATIVAN [Concomitant]
  9. LOVENOX [Concomitant]
     Route: 058
  10. AMLODIPINE [Concomitant]
  11. CELEXA [Concomitant]
  12. ADVAIR DISKUS 100/50 [Concomitant]
  13. MAALOX [Concomitant]
     Route: 048
  14. ZYPREXA [Concomitant]
  15. UNASYN [Concomitant]
     Route: 042

REACTIONS (4)
  - SHOCK [None]
  - DYSPNOEA [None]
  - PNEUMONIA ASPIRATION [None]
  - PANCREATIC CARCINOMA [None]
